FAERS Safety Report 13778854 (Version 8)
Quarter: 2020Q3

REPORT INFORMATION
  Report Type: Spontaneous
  Country: US (occurrence: US)
  Receive Date: 20170721
  Receipt Date: 20200716
  Transmission Date: 20201102
  Serious: No
  Sender: FDA-Public Use
  Company Number: US-PFIZER INC-2017314776

PATIENT
  Age: 48 Year
  Sex: Female

DRUGS (2)
  1. IBRANCE [Suspect]
     Active Substance: PALBOCICLIB
     Indication: BREAST CANCER STAGE IV
     Dosage: 125MG CYCLIC (1 CAPSULE DAILY FOR 21 DAYS ON AND 7DAYS OFF; 28 DAY CYCLE)
     Route: 048
     Dates: start: 201705
  2. PAXIL [Suspect]
     Active Substance: PAROXETINE HYDROCHLORIDE
     Dosage: UNK
     Dates: start: 201703

REACTIONS (14)
  - Mood altered [Unknown]
  - Thought blocking [Unknown]
  - Abnormal behaviour [Unknown]
  - Abdominal discomfort [Unknown]
  - Sputum increased [Unknown]
  - Paranoia [Unknown]
  - Fall [Unknown]
  - Hot flush [Unknown]
  - Decreased appetite [Unknown]
  - Abdominal pain upper [Unknown]
  - Respiratory tract congestion [Unknown]
  - Confusional state [Unknown]
  - Feeling abnormal [Unknown]
  - Diarrhoea [Unknown]

NARRATIVE: CASE EVENT DATE: 2017
